FAERS Safety Report 17533853 (Version 1)
Quarter: 2020Q1

REPORT INFORMATION
  Report Type: Report from Study
  Country: IT (occurrence: IT)
  Receive Date: 20200312
  Receipt Date: 20200312
  Transmission Date: 20200409
  Serious: Yes (Other)
  Sender: FDA-Public Use
  Company Number: IT-ACCORD-175522

PATIENT
  Age: 21 Year
  Sex: Female

DRUGS (1)
  1. LEVETIRACETAM. [Suspect]
     Active Substance: LEVETIRACETAM
     Indication: EPILEPSY

REACTIONS (8)
  - Injury [Recovering/Resolving]
  - Medication error [Unknown]
  - Headache [Recovering/Resolving]
  - Tongue biting [Recovering/Resolving]
  - Vomiting [Recovering/Resolving]
  - Withdrawal syndrome [Recovering/Resolving]
  - Amnesia [Unknown]
  - Epilepsy [Recovering/Resolving]

NARRATIVE: CASE EVENT DATE: 20200130
